FAERS Safety Report 12796712 (Version 1)
Quarter: 2016Q3

REPORT INFORMATION
  Report Type: Spontaneous
  Country: US (occurrence: US)
  Receive Date: 20160929
  Receipt Date: 20160929
  Transmission Date: 20161109
  Serious: No
  Sender: FDA-Public Use
  Company Number: US-PFIZER INC-2889064

PATIENT
  Age: 27 Year
  Sex: Female
  Weight: 72.73 kg

DRUGS (1)
  1. BUPIVACAINE HYDROCHLORIDE/EPINEPHRINE [Suspect]
     Active Substance: BUPIVACAINE HYDROCHLORIDE\EPINEPHRINE
     Indication: ANAESTHESIA
     Dosage: 0.5 ML, ONCE, FREQ: AS NECESSARY
     Route: 024
     Dates: start: 20150527, end: 20150527

REACTIONS (1)
  - Drug ineffective [Recovered/Resolved]

NARRATIVE: CASE EVENT DATE: 20150527
